FAERS Safety Report 4521573-4 (Version None)
Quarter: 2004Q4

REPORT INFORMATION
  Report Type: 
  Country: None (occurrence: None)
  Receive Date: 20041206
  Receipt Date: 20041119
  Transmission Date: 20050328
  Serious: Yes (Other)
  Sender: FDA-Public Use
  Company Number: PHEH2004US12545

PATIENT

DRUGS (1)
  1. VISUDYNE [Suspect]
     Dates: start: 20041118, end: 20041118

REACTIONS (2)
  - CONVULSION [None]
  - PAIN IN EXTREMITY [None]
